FAERS Safety Report 20144939 (Version 2)
Quarter: 2022Q1

REPORT INFORMATION
  Report Type: Spontaneous
  Country: RU (occurrence: RU)
  Receive Date: 20211203
  Receipt Date: 20220127
  Transmission Date: 20220423
  Serious: Yes (Other)
  Sender: FDA-Public Use
  Company Number: RU-AMGEN-RUSSP2021187178

PATIENT
  Age: 5 Year
  Sex: Female

DRUGS (1)
  1. NPLATE [Suspect]
     Active Substance: ROMIPLOSTIM
     Indication: Immune thrombocytopenia
     Dosage: UNK UNK, QWK
     Route: 058

REACTIONS (7)
  - Withdrawal syndrome [Recovered/Resolved]
  - Intestinal haemorrhage [Unknown]
  - Bone pain [Unknown]
  - Headache [Unknown]
  - Decreased appetite [Unknown]
  - Pain in extremity [Unknown]
  - Epistaxis [Unknown]
